FAERS Safety Report 7279846-0 (Version None)
Quarter: 2011Q1

REPORT INFORMATION
  Report Type: 
  Country: None (occurrence: None)
  Receive Date: 20110208
  Receipt Date: 20110131
  Transmission Date: 20110831
  Serious: Yes (Other)
  Sender: FDA-Public Use
  Company Number: US-BAYER-201040036NA

PATIENT
  Age: 30 Year
  Sex: Female

DRUGS (2)
  1. YASMIN [Suspect]
     Indication: ACNE
     Dosage: UNK
     Route: 048
     Dates: start: 20030701
  2. YAZ [Suspect]
     Indication: ACNE
     Dosage: UNK
     Dates: start: 20030701

REACTIONS (2)
  - PAIN [None]
  - CHOLECYSTITIS [None]
